FAERS Safety Report 24296656 (Version 4)
Quarter: 2024Q4

REPORT INFORMATION
  Report Type: Spontaneous
  Country: ES (occurrence: ES)
  Receive Date: 20240909
  Receipt Date: 20241105
  Transmission Date: 20250115
  Serious: Yes (Death, Hospitalization)
  Sender: BOEHRINGER INGELHEIM
  Company Number: ES-BoehringerIngelheim-2024-BI-049941

PATIENT
  Age: 76 Year
  Sex: Male
  Weight: 60 kg

DRUGS (9)
  1. SPESOLIMAB [Suspect]
     Active Substance: SPESOLIMAB
     Indication: Generalised pustular psoriasis
     Dosage: FIRST DOSE. 900 MG (2 VIALS OF 450 MG), 900 MG IV. TWO DOSES SEPARATED IN A WEEK.
     Route: 042
     Dates: start: 20240814, end: 20240814
  2. SPESOLIMAB [Suspect]
     Active Substance: SPESOLIMAB
     Dosage: SECOND DOSE. 900 MG (2 VIALS OF 450 MG)
     Route: 042
     Dates: start: 20240822, end: 20240822
  3. LINAGLIPTIN [Concomitant]
     Active Substance: LINAGLIPTIN
     Indication: Product used for unknown indication
  4. EBASTINE [Concomitant]
     Active Substance: EBASTINE
     Indication: Product used for unknown indication
  5. DAPAGLIFLOZIN [Concomitant]
     Active Substance: DAPAGLIFLOZIN
     Indication: Product used for unknown indication
  6. CALCIFEDIOL [Concomitant]
     Active Substance: CALCIFEDIOL
     Indication: Product used for unknown indication
  7. DEFLAZACORT [Concomitant]
     Active Substance: DEFLAZACORT
     Indication: Product used for unknown indication
  8. ATORVASTATIN [Concomitant]
     Active Substance: ATORVASTATIN
     Indication: Product used for unknown indication
  9. Tamsulosin/Dutasteride [Concomitant]
     Indication: Product used for unknown indication

REACTIONS (2)
  - Death [Fatal]
  - Urosepsis [Recovered/Resolved]

NARRATIVE: CASE EVENT DATE: 20240827
